FAERS Safety Report 5275897-6 (Version None)
Quarter: 2007Q1

REPORT INFORMATION
  Report Type: 
  Country: None (occurrence: None)
  Receive Date: 20070326
  Receipt Date: 20070313
  Transmission Date: 20070707
  Serious: Yes (Hospitalization)
  Sender: FDA-Public Use
  Company Number: JP-MERCK-0703USA03525

PATIENT
  Age: 74 Year
  Sex: Male

DRUGS (6)
  1. VASOTEC [Suspect]
     Route: 048
  2. WARFARIN POTASSIUM [Concomitant]
     Route: 048
  3. WARFARIN POTASSIUM [Concomitant]
     Route: 048
  4. DIGOXIN [Concomitant]
     Route: 048
  5. MEVALOTIN [Concomitant]
     Route: 048
  6. PLETAL [Concomitant]
     Route: 048

REACTIONS (3)
  - CARDIAC FAILURE [None]
  - DYSPNOEA [None]
  - OVERDOSE [None]
